FAERS Safety Report 15030714 (Version 10)
Quarter: 2019Q4

REPORT INFORMATION
  Report Type: Report from Study
  Country: PA (occurrence: PA)
  Receive Date: 20180619
  Receipt Date: 20191206
  Transmission Date: 20200122
  Serious: Yes (Hospitalization, Other)
  Sender: FDA-Public Use
  Company Number: PHHY2018PA024169

PATIENT
  Sex: Male
  Weight: 86.17 kg

DRUGS (2)
  1. EXFORGE [Suspect]
     Active Substance: AMLODIPINE BESYLATE\VALSARTAN
     Indication: HYPERTENSION
     Dosage: 1 DF (160/5 MG), QD
     Route: 065
     Dates: start: 2017
  2. GILENYA [Suspect]
     Active Substance: FINGOLIMOD HYDROCHLORIDE
     Indication: MULTIPLE SCLEROSIS
     Dosage: 0.5 MG, QD
     Route: 065
     Dates: start: 20180101

REACTIONS (26)
  - Hypoaesthesia [Not Recovered/Not Resolved]
  - Vertigo [Unknown]
  - Muscular weakness [Unknown]
  - Fibroma [Unknown]
  - Nephrolithiasis [Recovered/Resolved]
  - Multiple sclerosis relapse [Recovering/Resolving]
  - Malaise [Not Recovered/Not Resolved]
  - Hypertension [Unknown]
  - Fear [Unknown]
  - Fall [Unknown]
  - Nervousness [Unknown]
  - Wound [Unknown]
  - Stress [Unknown]
  - Tooth disorder [Unknown]
  - Contusion [Unknown]
  - Tension [Unknown]
  - Muscle spasms [Not Recovered/Not Resolved]
  - Coordination abnormal [Unknown]
  - Limb discomfort [Unknown]
  - Metatarsalgia [Unknown]
  - Blood triglycerides increased [Recovered/Resolved]
  - Gait inability [Unknown]
  - Pain [Unknown]
  - Dizziness [Not Recovered/Not Resolved]
  - Balance disorder [Unknown]
  - Feeling abnormal [Unknown]

NARRATIVE: CASE EVENT DATE: 2019
